FAERS Safety Report 19592962 (Version 2)
Quarter: 2021Q4

REPORT INFORMATION
  Report Type: Spontaneous
  Country: US (occurrence: US)
  Receive Date: 20210722
  Receipt Date: 20211007
  Transmission Date: 20220303
  Serious: No
  Sender: FDA-Public Use
  Company Number: US-KARYOPHARM-2021KPT000844

PATIENT

DRUGS (19)
  1. XPOVIO [Suspect]
     Active Substance: SELINEXOR
     Indication: Plasma cell myeloma
     Dosage: 60 MG, WEEKLY
     Route: 048
  2. XPOVIO [Suspect]
     Active Substance: SELINEXOR
     Dosage: 40 MG, WEEKLY
     Route: 048
  3. ALPHA LIPOIC ACID [Concomitant]
     Active Substance: .ALPHA.-LIPOIC ACID
  4. ATORVASTATIN [Concomitant]
     Active Substance: ATORVASTATIN
  5. BUMEX [Concomitant]
     Active Substance: BUMETANIDE
  6. CALCITRIOL [Concomitant]
     Active Substance: CALCITRIOL
  7. DEXAMETHASONE [Concomitant]
     Active Substance: DEXAMETHASONE
  8. NORCO [Concomitant]
     Active Substance: ACETAMINOPHEN\HYDROCODONE BITARTRATE
  9. LEVOTHYROXINE [Concomitant]
     Active Substance: LEVOTHYROXINE
  10. LOSARTAN [Concomitant]
     Active Substance: LOSARTAN
  11. METOPROLOL [Concomitant]
     Active Substance: METOPROLOL
  12. OLANZAPINE [Concomitant]
     Active Substance: OLANZAPINE
  13. OMEPRAZOLE [Concomitant]
     Active Substance: OMEPRAZOLE
  14. TAMSULOSIN [Concomitant]
     Active Substance: TAMSULOSIN
  15. TRADJENTA [Concomitant]
     Active Substance: LINAGLIPTIN
  16. NOVOLOG [Concomitant]
     Active Substance: INSULIN ASPART
  17. TRESIBA [Concomitant]
     Active Substance: INSULIN DEGLUDEC
  18. INSULIN NOS [Concomitant]
     Active Substance: INSULIN NOS
  19. VELCADE [Concomitant]
     Active Substance: BORTEZOMIB

REACTIONS (4)
  - Blood pressure decreased [Recovering/Resolving]
  - Fall [Unknown]
  - Fatigue [Unknown]
  - Dizziness [Unknown]

NARRATIVE: CASE EVENT DATE: 20210601
